FAERS Safety Report 11315697 (Version 1)
Quarter: 2015Q3

REPORT INFORMATION
  Report Type: Spontaneous
  Country: NO (occurrence: NO)
  Receive Date: 20150728
  Receipt Date: 20150728
  Transmission Date: 20151125
  Serious: Yes (Hospitalization, Disabling, Other)
  Sender: FDA-Public Use
  Company Number: NO-ASTRAZENECA-2015SE72568

PATIENT
  Sex: Male

DRUGS (2)
  1. NEXIUM [Suspect]
     Active Substance: ESOMEPRAZOLE MAGNESIUM
     Dosage: IN THE LAST 4-5 YEARS , 40 MG, UNKNOWN FREQUENCY
     Route: 048
  2. NEXIUM [Suspect]
     Active Substance: ESOMEPRAZOLE MAGNESIUM
     Dosage: 20-40 MG, UNKNOWN FREQUENCY
     Route: 048
     Dates: start: 2006

REACTIONS (6)
  - Retinal vascular thrombosis [Unknown]
  - Cognitive disorder [Unknown]
  - Joint stiffness [Unknown]
  - Rhabdomyolysis [Unknown]
  - Fatigue [Unknown]
  - Psoriasis [Unknown]

NARRATIVE: CASE EVENT DATE: 2007
